FAERS Safety Report 14608313 (Version 2)
Quarter: 2018Q3

REPORT INFORMATION
  Report Type: Spontaneous
  Country: TW (occurrence: TW)
  Receive Date: 20180307
  Receipt Date: 20180815
  Transmission Date: 20181010
  Serious: Yes (Other)
  Sender: FDA-Public Use
  Company Number: TW-PFIZER INC-2018092039

PATIENT
  Age: 78 Year
  Sex: Female

DRUGS (1)
  1. CRIZOTINIB [Suspect]
     Active Substance: CRIZOTINIB
     Indication: LUNG NEOPLASM MALIGNANT
     Dosage: 250 MG, 2X/DAY
     Dates: start: 20160330

REACTIONS (2)
  - Alanine aminotransferase increased [Recovering/Resolving]
  - Carcinoembryonic antigen increased [Recovering/Resolving]

NARRATIVE: CASE EVENT DATE: 20160512
